FAERS Safety Report 9490931 (Version 1)
Quarter: 2013Q3

REPORT INFORMATION
  Report Type: Spontaneous
  Country: JP (occurrence: JP)
  Receive Date: 20130830
  Receipt Date: 20130830
  Transmission Date: 20140515
  Serious: Yes (Other)
  Sender: FDA-Public Use
  Company Number: JP-MERCK-1308JPN012029

PATIENT
  Sex: Female

DRUGS (4)
  1. REFLEX [Suspect]
     Dosage: DAILY DOSE:120 MG
     Route: 048
  2. DEPROMEL [Suspect]
     Indication: DEPRESSION
     Dosage: DAILY DOSE: 1250 MG
     Route: 048
  3. ETIZOLAM [Concomitant]
     Dosage: DAILY DOSE: 30 MG
     Route: 048
  4. ZOLPIDEM TARTRATE [Concomitant]
     Dosage: DAILY DOSE: 50 MG
     Route: 048

REACTIONS (2)
  - Loss of consciousness [Unknown]
  - Intentional overdose [Unknown]
